FAERS Safety Report 14173219 (Version 1)
Quarter: 2017Q4

REPORT INFORMATION
  Report Type: Spontaneous
  Country: US (occurrence: None)
  Receive Date: 20171109
  Receipt Date: 20171109
  Transmission Date: 20180321
  Serious: Yes (Life-Threatening, Hospitalization, Disabling)
  Sender: FDA-Public Use
  Company Number: None

PATIENT
  Age: 47 Year
  Sex: Male
  Weight: 80.74 kg

DRUGS (3)
  1. RISPERDAL [Suspect]
     Active Substance: RISPERIDONE
     Indication: BIPOLAR DISORDER
     Route: 048
     Dates: start: 20150723, end: 20170314
  2. RISPERDAL [Suspect]
     Active Substance: RISPERIDONE
     Indication: SCHIZOPHRENIA
     Route: 048
     Dates: start: 20150723, end: 20170314
  3. 81 MG BABY ASPIRIN [Concomitant]

REACTIONS (11)
  - Muscle rigidity [None]
  - Poor personal hygiene [None]
  - Weight increased [None]
  - Skin ulcer [None]
  - Adverse drug reaction [None]
  - Dyskinesia [None]
  - Dental caries [None]
  - Atrial fibrillation [None]
  - Depression [None]
  - Post-traumatic stress disorder [None]
  - Parkinson^s disease [None]

NARRATIVE: CASE EVENT DATE: 20170312
